FAERS Safety Report 10073259 (Version 1)
Quarter: 2014Q2

REPORT INFORMATION
  Report Type: Spontaneous
  Country: CA (occurrence: CA)
  Receive Date: 20140411
  Receipt Date: 20140411
  Transmission Date: 20141212
  Serious: Yes (Other)
  Sender: FDA-Public Use
  Company Number: CA-GLAXOSMITHKLINE-A1068965A

PATIENT
  Age: 85 Year
  Sex: Male
  Weight: 100 kg

DRUGS (6)
  1. AVODART [Suspect]
     Indication: PRODUCT USED FOR UNKNOWN INDICATION
     Dosage: .5MG PER DAY
     Route: 048
  2. TAMSULOSIN [Suspect]
     Indication: PRODUCT USED FOR UNKNOWN INDICATION
     Dosage: .4MG PER DAY
     Route: 048
  3. ALTACE [Concomitant]
     Route: 048
  4. BISOPROLOL [Concomitant]
     Route: 048
  5. HCTZ [Concomitant]
     Route: 048
  6. WARFARIN [Concomitant]
     Route: 048

REACTIONS (1)
  - Blood urine present [Not Recovered/Not Resolved]
